FAERS Safety Report 7540957-3 (Version None)
Quarter: 2011Q2

REPORT INFORMATION
  Report Type: 
  Country: None (occurrence: None)
  Receive Date: 20110610
  Receipt Date: 20110606
  Transmission Date: 20111010
  Serious: No
  Sender: FDA-Public Use
  Company Number: US-PFIZER INC-2011123705

PATIENT

DRUGS (1)
  1. TOVIAZ [Suspect]
     Dosage: UNK
     Dates: end: 20110401

REACTIONS (2)
  - CONSTIPATION [None]
  - DRY MOUTH [None]
